FAERS Safety Report 6692159-0 (Version None)
Quarter: 2010Q2

REPORT INFORMATION
  Report Type: 
  Country: None (occurrence: None)
  Receive Date: 20100422
  Receipt Date: 20090717
  Transmission Date: 20101027
  Serious: No
  Sender: FDA-Public Use
  Company Number: US-ASTRAZENECA-2009SE05195

PATIENT
  Age: 55 Year
  Sex: Male
  Weight: 121.1 kg

DRUGS (6)
  1. TOPROL-XL [Suspect]
     Indication: BLOOD PRESSURE
     Route: 048
     Dates: start: 20090201
  2. TOPROL-XL [Suspect]
     Indication: EXTRASYSTOLES
     Route: 048
     Dates: start: 20090201
  3. ASPIRIN [Concomitant]
  4. PLAVIX [Concomitant]
  5. METFORMIN HCL [Concomitant]
  6. TRICOR [Concomitant]

REACTIONS (3)
  - BURNING SENSATION [None]
  - DIZZINESS [None]
  - WEIGHT DECREASED [None]
